FAERS Safety Report 8881751 (Version 2)
Quarter: 2012Q4

REPORT INFORMATION
  Report Type: 
  Country: ZA (occurrence: ZA)
  Receive Date: 20121102
  Receipt Date: 20121204
  Transmission Date: 20130627
  Serious: Yes (Hospitalization, Other)
  Sender: FDA-Public Use
  Company Number: ZA-ELI_LILLY_AND_COMPANY-ZA201210008772

PATIENT
  Sex: Male

DRUGS (6)
  1. CYMBALTA [Suspect]
     Indication: DEPRESSION
     Dosage: 90 mg, UNK
     Route: 048
     Dates: start: 20110518
  2. ATENOLOL [Concomitant]
     Indication: HYPERTENSION
     Dosage: UNK, qd
     Route: 048
  3. ASPIRIN [Concomitant]
     Indication: HYPERTENSION
     Dosage: UNK, qd
     Route: 048
  4. ADALAT [Concomitant]
     Indication: HYPERTENSION
     Dosage: UNK, prn
     Route: 048
  5. OMEGA 3 [Concomitant]
     Indication: SUPPLEMENTATION THERAPY
     Dosage: UNK, qd
     Route: 048
  6. LYRICA [Concomitant]
     Dosage: UNK, qd
     Route: 048

REACTIONS (1)
  - Myocardial ischaemia [Unknown]
